FAERS Safety Report 9349860 (Version 2)
Quarter: 2013Q2

REPORT INFORMATION
  Report Type: Spontaneous
  Country: US (occurrence: None)
  Receive Date: 20130611
  Receipt Date: 20130620
  Transmission Date: 20140414
  Serious: Yes (Other)
  Sender: FDA-Public Use
  Company Number: USA/USA/13/0029955

PATIENT
  Age: 77 Year
  Sex: Male
  Weight: 81.65 kg

DRUGS (1)
  1. RANITIDINE [Suspect]
     Indication: GASTRIC ULCER
     Dosage: 150MG, 3 IN 1 WK, ORAL
     Route: 048
     Dates: start: 20130527

REACTIONS (1)
  - Depression [None]
